FAERS Safety Report 4355711-3 (Version None)
Quarter: 2004Q2

REPORT INFORMATION
  Report Type: 
  Country: None (occurrence: None)
  Receive Date: 20040510
  Receipt Date: 20040510
  Transmission Date: 20050107
  Serious: Yes (Life-Threatening, Hospitalization, Other)
  Sender: FDA-Public Use
  Company Number: None

PATIENT
  Sex: Female
  Weight: 34.0198 kg

DRUGS (4)
  1. CYPHER CXS13250 CORDIS [Suspect]
  2. JL4.5 [Concomitant]
  3. EBU [Concomitant]
  4. TAXUS [Concomitant]

REACTIONS (6)
  - CAROTID ARTERY THROMBOSIS [None]
  - CORONARY ARTERY DISSECTION [None]
  - ELECTROCARDIOGRAM ABNORMAL [None]
  - MEDICAL DEVICE COMPLICATION [None]
  - PROCEDURAL COMPLICATION [None]
  - STENT OCCLUSION [None]
